FAERS Safety Report 26005308 (Version 1)
Quarter: 2025Q4

REPORT INFORMATION
  Report Type: Spontaneous
  Country: PE (occurrence: PE)
  Receive Date: 20251106
  Receipt Date: 20251106
  Transmission Date: 20260117
  Serious: Yes (Other)
  Sender: ACCORD
  Company Number: PE-Accord-511400

PATIENT
  Age: 57 Year
  Sex: Male

DRUGS (4)
  1. FLUOROURACIL [Suspect]
     Active Substance: FLUOROURACIL
     Indication: Pancreatic carcinoma stage IV
     Dosage: 600 MG/M2 AND 1800 MG/M2 ADMINISTERED IN 4 CYCLES, EACH 2 WEEKS APART
  2. LEUCOVORIN [Concomitant]
     Active Substance: LEUCOVORIN\LEUCOVORIN CALCIUM
     Indication: Pancreatic carcinoma stage IV
     Dosage: TREATMENT WAS ADMINISTERED IN 4 CYCLES, EACH 2 WEEKS APART
  3. OXALIPLATIN [Concomitant]
     Active Substance: OXALIPLATIN
     Indication: Pancreatic carcinoma stage IV
     Dosage: TREATMENT WAS ADMINISTERED IN 4 CYCLES, EACH 2 WEEKS APART
  4. FLUOROURACIL [Suspect]
     Active Substance: FLUOROURACIL
     Indication: Pancreatic carcinoma stage IV
     Dosage: 600 MG/M2 AND 1800 MG/M2 ADMINISTERED IN 4 CYCLES, EACH 2 WEEKS APART

REACTIONS (1)
  - Arteriospasm coronary [Recovering/Resolving]
